FAERS Safety Report 10666584 (Version 1)
Quarter: 2014Q4

REPORT INFORMATION
  Report Type: Other
  Country: IT (occurrence: IT)
  Receive Date: 20141221
  Receipt Date: 20141221
  Transmission Date: 20150529
  Serious: Yes (Hospitalization)
  Sender: FDA-Public Use
  Company Number: IT-MYLANLABS-2014M1013719

PATIENT

DRUGS (1)
  1. SOTALOL. [Suspect]
     Active Substance: SOTALOL
     Indication: HYPERTENSIVE HEART DISEASE
     Dosage: 20 MG, BID
     Route: 048
     Dates: start: 20131113, end: 20131116

REACTIONS (2)
  - Abdominal pain lower [Unknown]
  - Asthenia [Unknown]

NARRATIVE: CASE EVENT DATE: 20131113
